FAERS Safety Report 9549836 (Version 1)
Quarter: 2013Q3

REPORT INFORMATION
  Report Type: Spontaneous
  Country: AU (occurrence: AU)
  Receive Date: 20130924
  Receipt Date: 20130924
  Transmission Date: 20140515
  Serious: Yes (Life-Threatening)
  Sender: FDA-Public Use
  Company Number: AU-MYLANLABS-2013S1020619

PATIENT
  Sex: 0

DRUGS (2)
  1. PROPRANOLOL [Suspect]
     Indication: HAEMANGIOMA
     Dosage: THEN 0.25 MG/KG TWICE DAILY.
     Route: 065
  2. PROPRANOLOL [Suspect]
     Indication: HAEMANGIOMA
     Route: 065

REACTIONS (2)
  - Apnoea neonatal [Recovered/Resolved]
  - Condition aggravated [Recovered/Resolved]
